FAERS Safety Report 19679989 (Version 2)
Quarter: 2021Q3

REPORT INFORMATION
  Report Type: Spontaneous
  Country: JP (occurrence: JP)
  Receive Date: 20210809
  Receipt Date: 20210813
  Transmission Date: 20211014
  Serious: Yes (Other)
  Sender: FDA-Public Use
  Company Number: NVSJ2021JP009521

PATIENT
  Age: 81 Year
  Sex: Male

DRUGS (1)
  1. BEOVU [Suspect]
     Active Substance: BROLUCIZUMAB-DBLL
     Indication: AGE-RELATED MACULAR DEGENERATION
     Dosage: 6 MG
     Route: 031
     Dates: start: 20210517, end: 20210517

REACTIONS (10)
  - Retinal vein occlusion [Not Recovered/Not Resolved]
  - Retinal haemorrhage [Unknown]
  - Vitreous haemorrhage [Recovering/Resolving]
  - Age-related macular degeneration [Unknown]
  - Disease progression [Unknown]
  - Concomitant disease aggravated [Not Recovered/Not Resolved]
  - Visual acuity reduced [Unknown]
  - Eye inflammation [Unknown]
  - Retinal perivascular sheathing [Unknown]
  - Macular oedema [Unknown]

NARRATIVE: CASE EVENT DATE: 20210604
